FAERS Safety Report 10617526 (Version 13)
Quarter: 2015Q2

REPORT INFORMATION
  Report Type: Spontaneous
  Country: US (occurrence: US)
  Receive Date: 20141201
  Receipt Date: 20150617
  Transmission Date: 20150821
  Serious: Yes (Hospitalization, Other)
  Sender: FDA-Public Use
  Company Number: US-ACTELION-A-NJ2014-100355

PATIENT
  Age: 56 Year
  Sex: Male

DRUGS (21)
  1. VELETRI [Suspect]
     Active Substance: EPOPROSTENOL
     Dosage: 10 NG/KG, PER MIN
     Route: 042
     Dates: start: 20140528
  2. VELETRI [Suspect]
     Active Substance: EPOPROSTENOL
     Dosage: 34 NG/KG, PER MIN
     Route: 042
  3. TYLENOL [Concomitant]
     Active Substance: ACETAMINOPHEN
     Dosage: UNK, PRN
  4. LASIX [Concomitant]
     Active Substance: FUROSEMIDE
     Dosage: 60 MG, UNK
  5. NEXIUM [Concomitant]
     Active Substance: ESOMEPRAZOLE MAGNESIUM
     Dosage: 40 MG, UNK
  6. FOLIC ACID. [Concomitant]
     Active Substance: FOLIC ACID
     Dosage: 1 MG, UNK
  7. RIFAXIMIN [Concomitant]
     Active Substance: RIFAXIMIN
     Dosage: 550 MG, BID
  8. WELLBUTRIN [Concomitant]
     Active Substance: BUPROPION HYDROCHLORIDE
     Dosage: 150 MG, UNK
  9. VITAMIN D [Concomitant]
     Active Substance: CHOLECALCIFEROL
     Dosage: 1.25 MG, BID
  10. HYDROCORTISONE MEDIS [Concomitant]
     Dosage: UNK, PRN
  11. IRON [Concomitant]
     Active Substance: IRON
     Route: 042
  12. FLAGYL [Concomitant]
     Active Substance: METRONIDAZOLE\METRONIDAZOLE HYDROCHLORIDE
     Dosage: UNK, BID
     Route: 061
  13. VELETRI [Suspect]
     Active Substance: EPOPROSTENOL
     Indication: PULMONARY ARTERIAL HYPERTENSION
     Dosage: 40 NG/KG, PER MIN
     Route: 042
     Dates: start: 20140611
  14. ADCIRCA [Concomitant]
     Active Substance: TADALAFIL
     Dosage: 40 MG, QD
  15. NORCO [Concomitant]
     Active Substance: ACETAMINOPHEN\HYDROCODONE BITARTRATE
     Dosage: UNK, QID
  16. TYVASO [Concomitant]
     Active Substance: TREPROSTINIL
     Indication: PORTOPULMONARY HYPERTENSION
     Dosage: 4 PUFF, Q6HRS
     Dates: end: 20140610
  17. NEURONTIN [Concomitant]
     Active Substance: GABAPENTIN
  18. SYNTHROID [Concomitant]
     Active Substance: LEVOTHYROXINE SODIUM
     Dosage: 150 UNK, UNK
  19. ZOFRAN [Concomitant]
     Active Substance: ONDANSETRON HYDROCHLORIDE
     Dosage: UNK, PRN
  20. SPIRONOLACTONE. [Concomitant]
     Active Substance: SPIRONOLACTONE
     Dosage: 150 MG, UNK
  21. TEMAZEPAM. [Concomitant]
     Active Substance: TEMAZEPAM
     Dosage: 30 MG, UNK

REACTIONS (40)
  - Thrombocytopenia [Unknown]
  - Transfusion [Unknown]
  - Abdominal pain [Unknown]
  - Musculoskeletal pain [Unknown]
  - Vomiting [Unknown]
  - Back pain [Recovering/Resolving]
  - Nausea [Recovering/Resolving]
  - Adrenal mass [Unknown]
  - Hepatic cirrhosis [Not Recovered/Not Resolved]
  - Ascites [Unknown]
  - Abdominal cavity drainage [Unknown]
  - Headache [Unknown]
  - Anaemia [Not Recovered/Not Resolved]
  - Chest discomfort [Unknown]
  - Pain [Unknown]
  - Palpitations [Unknown]
  - Device occlusion [Unknown]
  - Peritonitis [Unknown]
  - Abdominal distension [Unknown]
  - No adverse event [Unknown]
  - Anxiety [Unknown]
  - Pain in extremity [Unknown]
  - Systemic inflammatory response syndrome [Unknown]
  - Haemoglobin decreased [Not Recovered/Not Resolved]
  - Device alarm issue [Unknown]
  - Arthralgia [Unknown]
  - Oedema peripheral [Unknown]
  - Paraesthesia [Unknown]
  - Pain in jaw [Unknown]
  - Condition aggravated [Unknown]
  - Abdominal pain upper [Recovering/Resolving]
  - Oedema [Unknown]
  - Liver transplant [Unknown]
  - Fluid retention [Unknown]
  - Gastrointestinal haemorrhage [Unknown]
  - Device malfunction [Unknown]
  - Tachycardia [Unknown]
  - Flushing [Unknown]
  - Rash [Recovering/Resolving]
  - Constipation [Unknown]

NARRATIVE: CASE EVENT DATE: 20140609
